FAERS Safety Report 6468157-9 (Version None)
Quarter: 2009Q4

REPORT INFORMATION
  Report Type: 
  Country: None (occurrence: None)
  Receive Date: 20091202
  Receipt Date: 20091120
  Transmission Date: 20100525
  Serious: Yes (Other)
  Sender: FDA-Public Use
  Company Number: GB-BAUSCH-2006BL006506

PATIENT
  Age: 62 Year
  Sex: Male

DRUGS (3)
  1. PREDNISOLONE [Suspect]
     Indication: POLYMYOSITIS
     Route: 048
  2. ATROPINE [Suspect]
     Indication: ANTICHOLINERGIC SYNDROME
     Route: 042
  3. IRINOTECAN HYDROCHLORIDE [Suspect]
     Indication: GASTROINTESTINAL CARCINOMA
     Route: 042
     Dates: start: 20061006, end: 20061020

REACTIONS (2)
  - MUSCULAR WEAKNESS [None]
  - PARAPARESIS [None]
